FAERS Safety Report 18895692 (Version 1)
Quarter: 2021Q1

REPORT INFORMATION
  Report Type: Other
  Country: ES (occurrence: ES)
  Receive Date: 20210216
  Receipt Date: 20210216
  Transmission Date: 20210420
  Serious: Yes (Hospitalization)
  Sender: FDA-Public Use
  Company Number: ES-ROCHE-2769204

PATIENT
  Age: 85 Year
  Sex: Male

DRUGS (3)
  1. LORAZEPAM. [Concomitant]
     Active Substance: LORAZEPAM
  2. AMLODIPINE [Concomitant]
     Active Substance: AMLODIPINE BESYLATE
  3. ALECTINIB. [Suspect]
     Active Substance: ALECTINIB
     Indication: LUNG SQUAMOUS CELL CARCINOMA STAGE III
     Route: 065

REACTIONS (1)
  - Organising pneumonia [Recovering/Resolving]
